FAERS Safety Report 17091572 (Version 3)
Quarter: 2020Q1

REPORT INFORMATION
  Report Type: Spontaneous
  Country: FR (occurrence: FR)
  Receive Date: 20191129
  Receipt Date: 20200207
  Transmission Date: 20200409
  Serious: Yes (Hospitalization)
  Sender: FDA-Public Use
  Company Number: FR-DRREDDYS-GER/FRA/19/0116414

PATIENT
  Age: 82 Year
  Sex: Male
  Weight: 72 kg

DRUGS (2)
  1. TAZOCILLINE [Suspect]
     Active Substance: PIPERACILLIN SODIUM\TAZOBACTAM SODIUM
     Indication: OSTEITIS
     Route: 042
     Dates: start: 20190828, end: 20190831
  2. DAPTOMYCIN. [Suspect]
     Active Substance: DAPTOMYCIN
     Indication: OSTEITIS
     Route: 042
     Dates: start: 20190828, end: 20190831

REACTIONS (1)
  - Toxic epidermal necrolysis [Recovered/Resolved]

NARRATIVE: CASE EVENT DATE: 20190831
